FAERS Safety Report 5449495-5 (Version None)
Quarter: 2007Q3

REPORT INFORMATION
  Report Type: 
  Country: None (occurrence: None)
  Receive Date: 20070907
  Receipt Date: 20070820
  Transmission Date: 20080115
  Serious: No
  Sender: FDA-Public Use
  Company Number: AT200708004216

PATIENT
  Age: 46 Year
  Sex: Male

DRUGS (5)
  1. CYMBALTA [Suspect]
     Dosage: 60 MG, DAILY (1/D), ORAL
     Route: 048
     Dates: start: 20070101
  2. OLANZAPINE [Suspect]
     Dosage: 2.5 MG, DAILY (1/D)
  3. DEPAKENE [Concomitant]
  4. SEROQUEL [Concomitant]
  5. TRITTICO (TRAZODONE HYDROCHLORIDE) [Concomitant]

REACTIONS (1)
  - PLATELET COUNT DECREASED [None]
